FAERS Safety Report 12766561 (Version 1)
Quarter: 2016Q3

REPORT INFORMATION
  Report Type: Spontaneous
  Country: US (occurrence: US)
  Receive Date: 20160915
  Receipt Date: 20160915
  Transmission Date: 20161109
  Serious: No
  Sender: FDA-Public Use
  Company Number: None

PATIENT
  Age: 30 Year
  Sex: Male

DRUGS (1)
  1. COPAXONE [Suspect]
     Active Substance: GLATIRAMER ACETATE
     Indication: NEUROMYELITIS OPTICA SPECTRUM DISORDER
     Route: 058
     Dates: start: 20130102

REACTIONS (5)
  - Post procedural complication [None]
  - Cardiac disorder [None]
  - Dyspnoea [None]
  - Tremor [None]
  - Injection site haemorrhage [None]

NARRATIVE: CASE EVENT DATE: 20160601
